FAERS Safety Report 5741114-3 (Version None)
Quarter: 2008Q2

REPORT INFORMATION
  Report Type: 
  Country: None (occurrence: None)
  Receive Date: 20080516
  Receipt Date: 20080508
  Transmission Date: 20081010
  Serious: Yes (Other)
  Sender: FDA-Public Use
  Company Number: US-PFIZER INC-2008040180

PATIENT
  Sex: Female
  Weight: 49.9 kg

DRUGS (6)
  1. LIPITOR [Suspect]
     Indication: PROPHYLAXIS
  2. PLAVIX [Concomitant]
  3. NORVASC [Concomitant]
  4. BENICAR [Concomitant]
  5. ATENOLOL [Concomitant]
  6. ACETYLSALICYLIC ACID SRT [Concomitant]
     Dosage: DAILY DOSE:325MG

REACTIONS (6)
  - ASTHENIA [None]
  - DIZZINESS [None]
  - DYSSTASIA [None]
  - FATIGUE [None]
  - HYPOTENSION [None]
  - MEMORY IMPAIRMENT [None]
